FAERS Safety Report 17346632 (Version 1)
Quarter: 2020Q1

REPORT INFORMATION
  Report Type: Spontaneous
  Country: SE (occurrence: SE)
  Receive Date: 20200130
  Receipt Date: 20200130
  Transmission Date: 20200409
  Serious: Yes (Hospitalization)
  Sender: FDA-Public Use
  Company Number: NVSC2020SE019225

PATIENT
  Age: 30 Year
  Sex: Female

DRUGS (5)
  1. PARACETAMOL [Suspect]
     Active Substance: ACETAMINOPHEN
     Indication: PRODUCT USED FOR UNKNOWN INDICATION
     Dosage: 10000 MG
     Route: 065
     Dates: start: 20191018, end: 20191018
  2. IMOVANE [Suspect]
     Active Substance: ZOPICLONE
     Indication: PRODUCT USED FOR UNKNOWN INDICATION
     Dosage: 150 MG
     Route: 065
     Dates: start: 20191018, end: 20191018
  3. IKTORIVIL [Suspect]
     Active Substance: CLONAZEPAM
     Indication: PRODUCT USED FOR UNKNOWN INDICATION
     Dosage: UNK (10-15 STYCKEN)
     Route: 065
     Dates: start: 20191018, end: 20191018
  4. QUETIAPINE. [Suspect]
     Active Substance: QUETIAPINE
     Indication: PRODUCT USED FOR UNKNOWN INDICATION
     Dosage: 500 MG
     Route: 065
     Dates: start: 20191018, end: 20191018
  5. THERALEN [Suspect]
     Active Substance: TRIMEPRAZINE
     Indication: PRODUCT USED FOR UNKNOWN INDICATION
     Dosage: UNK (50-60 STYCKEN)
     Route: 065
     Dates: start: 20191018, end: 20191018

REACTIONS (4)
  - Suicidal ideation [Unknown]
  - Intentional overdose [Unknown]
  - Toxicity to various agents [Unknown]
  - Agitation [Unknown]

NARRATIVE: CASE EVENT DATE: 20191018
